FAERS Safety Report 5551970-X (Version None)
Quarter: 2007Q4

REPORT INFORMATION
  Report Type: 
  Country: None (occurrence: None)
  Receive Date: 20071212
  Receipt Date: 20071130
  Transmission Date: 20080405
  Serious: Yes (Other)
  Sender: FDA-Public Use
  Company Number: US-PFIZER INC-2007102428

PATIENT
  Sex: Female
  Weight: 65.909 kg

DRUGS (4)
  1. CHANTIX [Suspect]
     Indication: SMOKING CESSATION THERAPY
     Dates: start: 20071008, end: 20071126
  2. LEVOXYL [Concomitant]
  3. PROTONIX [Concomitant]
  4. LACTULOSE [Concomitant]
     Indication: CONSTIPATION

REACTIONS (12)
  - ABDOMINAL DISTENSION [None]
  - CARDIAC DISCOMFORT [None]
  - CRYING [None]
  - EXOSTOSIS [None]
  - HELICOBACTER GASTRITIS [None]
  - HYPERHIDROSIS [None]
  - HYPERTENSION [None]
  - HYPOAESTHESIA [None]
  - IRRITABILITY [None]
  - NAUSEA [None]
  - NERVE INJURY [None]
  - TINNITUS [None]
